FAERS Safety Report 18319308 (Version 3)
Quarter: 2020Q4

REPORT INFORMATION
  Report Type: Report from Study
  Country: US (occurrence: US)
  Receive Date: 20200928
  Receipt Date: 20201215
  Transmission Date: 20210113
  Serious: Yes (Other)
  Sender: FDA-Public Use
  Company Number: NVSC2020US259049

PATIENT
  Sex: Male

DRUGS (1)
  1. ENTRESTO [Suspect]
     Active Substance: SACUBITRIL\VALSARTAN
     Indication: PRODUCT USED FOR UNKNOWN INDICATION
     Dosage: 50 MG (24/26 MG), BID
     Route: 048
     Dates: start: 202010

REACTIONS (6)
  - Hypotension [Unknown]
  - Leukaemia [Unknown]
  - Ejection fraction decreased [Unknown]
  - Hypoacusis [Unknown]
  - Periarthritis [Unknown]
  - Dizziness [Unknown]
